FAERS Safety Report 24524811 (Version 1)
Quarter: 2024Q4

REPORT INFORMATION
  Report Type: Spontaneous
  Country: GB (occurrence: GB)
  Receive Date: 20241019
  Receipt Date: 20241019
  Transmission Date: 20250115
  Serious: Yes (Hospitalization, Other)
  Sender: GENMAB
  Company Number: GB-ABBVIE-5967140

PATIENT
  Age: 47 Year
  Sex: Male

DRUGS (1)
  1. EPCORITAMAB [Suspect]
     Active Substance: EPCORITAMAB
     Indication: Diffuse large B-cell lymphoma
     Dosage: UNK
     Route: 058

REACTIONS (3)
  - Intestinal obstruction [Unknown]
  - Diffuse large B-cell lymphoma [Unknown]
  - Unevaluable event [Unknown]
